FAERS Safety Report 24179255 (Version 1)
Quarter: 2024Q3

REPORT INFORMATION
  Report Type: Spontaneous
  Country: BR (occurrence: BR)
  Receive Date: 20240806
  Receipt Date: 20240806
  Transmission Date: 20241017
  Serious: Yes (Other)
  Sender: PFIZER
  Company Number: BR-TAKEDA-2024TUS076730

PATIENT
  Age: 57 Year
  Sex: Female
  Weight: 90 kg

DRUGS (8)
  1. PANTOPRAZOLE [Suspect]
     Active Substance: PANTOPRAZOLE
     Dosage: UNK
     Route: 065
  2. VONOPRAZAN FUMARATE [Suspect]
     Active Substance: VONOPRAZAN FUMARATE
     Indication: Gastritis
     Dosage: 20 MILLIGRAM, QD
     Route: 048
     Dates: start: 20240710, end: 20240728
  3. MOTILIUM [Concomitant]
     Active Substance: DOMPERIDONE
     Indication: Gastritis
     Dosage: UNK, Q8HR
  4. UNSPECIFIED INGREDIENT [Concomitant]
     Active Substance: UNSPECIFIED INGREDIENT
     Indication: Gastritis
     Dosage: UNK, Q8HR
  5. BILASTINE [Concomitant]
     Active Substance: BILASTINE
     Dosage: UNK
  6. DESVENLAFAXINE [Concomitant]
     Active Substance: DESVENLAFAXINE
     Indication: Antidepressant therapy
     Dosage: UNK, QD
     Route: 048
  7. PREGABALIN [Concomitant]
     Active Substance: PREGABALIN
     Indication: Fibromyalgia
     Dosage: UNK, QD
     Route: 048
  8. RIVOTRIL [Concomitant]
     Active Substance: CLONAZEPAM
     Indication: Anxiolytic therapy
     Dosage: UNK, QD
     Route: 048

REACTIONS (20)
  - Terminal state [Unknown]
  - Gastric ulcer [Unknown]
  - Gastritis [Unknown]
  - Arthritis [Unknown]
  - Osteoarthritis [Unknown]
  - Eating disorder [Unknown]
  - Gastric atony [Unknown]
  - Dyspnoea [Unknown]
  - Dyspepsia [Unknown]
  - Eructation [Unknown]
  - Gastrointestinal disorder [Unknown]
  - Gastrooesophageal reflux disease [Unknown]
  - Abdominal pain upper [Unknown]
  - Malaise [Unknown]
  - Arthralgia [Unknown]
  - Abdominal discomfort [Unknown]
  - Abdominal pain [Unknown]
  - Headache [Unknown]
  - Abdominal distension [Unknown]
  - Product use issue [Unknown]
